FAERS Safety Report 8532473-7 (Version None)
Quarter: 2012Q3

REPORT INFORMATION
  Report Type: 
  Country: None (occurrence: None)
  Receive Date: 20120716
  Receipt Date: 20120716
  Transmission Date: 20120928
  Serious: Yes (Disabling)
  Sender: FDA-Public Use
  Company Number: None

PATIENT
  Age: 52 Year
  Sex: Female
  Weight: 80.2867 kg

DRUGS (1)
  1. BOTOX [Suspect]
     Indication: MIGRAINE
     Dosage: EVERY 12 WEEKS
     Dates: start: 20030501, end: 20120601

REACTIONS (6)
  - TOTAL LUNG CAPACITY DECREASED [None]
  - RESPIRATORY DISORDER [None]
  - ANXIETY [None]
  - DYSPNOEA EXERTIONAL [None]
  - COUGH [None]
  - WHEEZING [None]
